FAERS Safety Report 22078183 (Version 1)
Quarter: 2023Q1

REPORT INFORMATION
  Report Type: Spontaneous
  Country: US (occurrence: US)
  Receive Date: 20230309
  Receipt Date: 20230309
  Transmission Date: 20230417
  Serious: Yes (Other)
  Sender: FDA-Public Use
  Company Number: US-PFIZER INC-202300097167

PATIENT
  Age: 49 Year
  Sex: Male

DRUGS (1)
  1. CELONTIN [Suspect]
     Active Substance: METHSUXIMIDE
     Indication: Seizure
     Dosage: UNK

REACTIONS (1)
  - Pneumonia [Unknown]
